FAERS Safety Report 24174657 (Version 2)
Quarter: 2024Q3

REPORT INFORMATION
  Report Type: Spontaneous
  Country: US (occurrence: US)
  Receive Date: 20240805
  Receipt Date: 20240904
  Transmission Date: 20241017
  Serious: No
  Sender: PFIZER
  Company Number: US-PFIZER INC-202400049513

PATIENT
  Age: 37 Year
  Sex: Male

DRUGS (3)
  1. OXBRYTA [Suspect]
     Active Substance: VOXELOTOR
     Dosage: 500MG, ORALLY, THREE TABLETS ONE TIME DAILY
     Route: 048
  2. OXBRYTA [Suspect]
     Active Substance: VOXELOTOR
     Dosage: 500 MG., 3 TABLETS, ONCE DAILY
     Route: 048
     Dates: start: 20240214
  3. OXBRYTA [Suspect]
     Active Substance: VOXELOTOR
     Dosage: 500 MG, 1X/DAY 3 TABLETS
     Route: 048
     Dates: start: 20240214

REACTIONS (3)
  - Off label use [Unknown]
  - Product dose omission in error [Unknown]
  - Haemoglobin increased [Not Recovered/Not Resolved]
